FAERS Safety Report 17442442 (Version 1)
Quarter: 2020Q1

REPORT INFORMATION
  Report Type: Spontaneous
  Country: US (occurrence: US)
  Receive Date: 20200220
  Receipt Date: 20200220
  Transmission Date: 20200409
  Serious: No
  Sender: FDA-Public Use
  Company Number: US-BAUSCH-BL-2020-003527

PATIENT
  Age: 55 Year
  Sex: Male

DRUGS (2)
  1. LUMIFY [Suspect]
     Active Substance: BRIMONIDINE TARTRATE
     Indication: OCULAR HYPERAEMIA
     Dosage: STARTED APPROXIMATELY 4-5 MONTHS AGO, 2 DROPS IN EACH EYE 2 TIMES A DAY
     Route: 047
     Dates: start: 201909, end: 201912
  2. LUMIFY [Suspect]
     Active Substance: BRIMONIDINE TARTRATE
     Dosage: 1 DROP IN EACH EYE 2 TIMES A DAY
     Route: 047
     Dates: start: 201912

REACTIONS (4)
  - Eye pruritus [Not Recovered/Not Resolved]
  - Periorbital swelling [Recovering/Resolving]
  - Inappropriate schedule of product administration [Unknown]
  - Incorrect dose administered [Unknown]

NARRATIVE: CASE EVENT DATE: 201909
